FAERS Safety Report 6345093-X (Version None)
Quarter: 2009Q3

REPORT INFORMATION
  Report Type: 
  Country: None (occurrence: None)
  Receive Date: 20090909
  Receipt Date: 20070620
  Transmission Date: 20100115
  Serious: Yes (Hospitalization, Other)
  Sender: FDA-Public Use
  Company Number: US-ASTRAZENECA-2006UW08459

PATIENT
  Age: 44 Year
  Sex: Female
  Weight: 73.5 kg

DRUGS (33)
  1. SEROQUEL [Suspect]
     Indication: BIPOLAR DISORDER
     Route: 048
     Dates: start: 19980101, end: 20030101
  2. SEROQUEL [Suspect]
     Indication: DEPRESSION
     Route: 048
     Dates: start: 19980101, end: 20030101
  3. SEROQUEL [Suspect]
     Route: 048
     Dates: start: 20030916
  4. SEROQUEL [Suspect]
     Route: 048
     Dates: start: 20030916
  5. RISPERDAL [Concomitant]
     Dates: start: 20030901
  6. RISPERDAL [Concomitant]
     Dosage: 1 MG HALF TWO TIMES A DAY
     Dates: start: 20030916
  7. DESYREL [Concomitant]
     Indication: INSOMNIA
     Dates: start: 19990723
  8. VICODIN [Concomitant]
     Indication: PAIN
     Dosage: EVERY SIX HOURS AS REQUIRED
     Dates: start: 20031028
  9. LEXAPRO [Concomitant]
     Dates: start: 20030916
  10. ACIPHEX [Concomitant]
     Dates: start: 20030916
  11. PREDNISONE TAB [Concomitant]
     Dosage: STRENGTH - 20 MG AND 60 MG
     Dates: start: 20060321
  12. COMBIVENT [Concomitant]
     Dates: start: 20030916
  13. QVAR 40 [Concomitant]
     Dates: start: 20030916
  14. ALBUTEROL [Concomitant]
     Dosage: EVERY 4 HOURS
     Dates: start: 20030916
  15. SINGULAIR [Concomitant]
     Dates: start: 20030916
  16. POTASSIUM CHLORIDE [Concomitant]
     Route: 048
     Dates: start: 20030916
  17. ADVAIR HFA [Concomitant]
     Dosage: STRENGTH - 250 / 50 ONE PUFF TWICE DAILY
     Dates: start: 20030916
  18. TUSSIONEX [Concomitant]
     Dates: start: 20030916
  19. FUROSEMIDE [Concomitant]
     Dates: start: 20030916
  20. CARDIZEM [Concomitant]
     Dates: start: 20060316
  21. NEURONTIN [Concomitant]
     Dates: start: 20060316
  22. NEXIUM [Concomitant]
     Dates: start: 20060316
  23. AVELOX [Concomitant]
     Dates: start: 20060316
  24. MAG OXIDE [Concomitant]
     Dates: start: 20060316
  25. ROBITUSSIN AC [Concomitant]
     Dosage: 10 ML, EVERY 4 HOURS AS NEEDED
     Dates: start: 20060316
  26. REGLAN [Concomitant]
     Dates: start: 20070221
  27. ALPHAGAN [Concomitant]
     Dosage: FOUR TIMES A DAY
     Dates: start: 20070221
  28. PERCOCET [Concomitant]
     Indication: PAIN
     Dosage: STRENGTH - 5 / 325 MG 1 TAB PO Q 6 HRS PRN
     Route: 048
     Dates: start: 20070221
  29. ZYRTEC [Concomitant]
     Dosage: STRENGTH - Q 12 H, 1 TABLET P.O. Q.A.M
     Route: 048
     Dates: start: 20070221
  30. HYDRALAZINE HCL [Concomitant]
     Route: 048
     Dates: start: 20070221
  31. FLONASE [Concomitant]
     Dosage: AS REQUIRED
     Dates: start: 20070221
  32. METHAZOLAPRIDE [Concomitant]
     Dates: start: 20070221
  33. PSUEDOEPHEDRINE/GUAIFENESIN [Concomitant]
     Dosage: TWO TIMES A DAY
     Dates: start: 20070221

REACTIONS (6)
  - DIABETES MELLITUS [None]
  - DIABETIC BLINDNESS [None]
  - DIABETIC RETINOPATHY [None]
  - HYPERGLYCAEMIA [None]
  - HYPOGLYCAEMIA [None]
  - TYPE 2 DIABETES MELLITUS [None]
